FAERS Safety Report 8964755 (Version 2)
Quarter: 2013Q2

REPORT INFORMATION
  Report Type: Report from Study
  Country: US (occurrence: US)
  Receive Date: 20121213
  Receipt Date: 20130424
  Transmission Date: 20140414
  Serious: Yes (Other)
  Sender: FDA-Public Use
  Company Number: US-US-EMD SERONO, INC.-7171813

PATIENT
  Age: 38 Year
  Sex: Female

DRUGS (2)
  1. REBIF [Suspect]
     Indication: PRODUCT USED FOR UNKNOWN INDICATION
     Route: 058
     Dates: start: 20120802, end: 201210
  2. REBIF [Suspect]
     Route: 058

REACTIONS (6)
  - Upper gastrointestinal haemorrhage [Recovering/Resolving]
  - Intestinal haemorrhage [Unknown]
  - Anger [Unknown]
  - Sinus disorder [Not Recovered/Not Resolved]
  - Multiple allergies [Not Recovered/Not Resolved]
  - Anaemia [Recovering/Resolving]
